FAERS Safety Report 7225265-2 (Version None)
Quarter: 2011Q1

REPORT INFORMATION
  Report Type: 
  Country: None (occurrence: None)
  Receive Date: 20110113
  Receipt Date: 20110106
  Transmission Date: 20110831
  Serious: Yes (Life-Threatening, Hospitalization)
  Sender: FDA-Public Use
  Company Number: B0692374A

PATIENT
  Sex: Female

DRUGS (13)
  1. UROMITEXAN [Suspect]
     Indication: BONE SARCOMA
     Dosage: 400MG CYCLIC
     Route: 042
     Dates: start: 20100913, end: 20100914
  2. DEROXAT [Concomitant]
     Indication: PRODUCT USED FOR UNKNOWN INDICATION
     Route: 065
  3. ACUPAN [Suspect]
     Indication: PROCEDURAL PAIN
     Dosage: 20MG UNKNOWN
     Route: 042
     Dates: start: 20100913, end: 20100917
  4. LYRICA [Concomitant]
     Indication: PRODUCT USED FOR UNKNOWN INDICATION
     Route: 065
  5. PRIMPERAN TAB [Concomitant]
     Indication: PRODUCT USED FOR UNKNOWN INDICATION
     Route: 065
  6. ETOPOSIDE [Suspect]
     Indication: BONE SARCOMA
     Dosage: 100MG PER DAY
     Route: 042
     Dates: start: 20100913, end: 20100915
  7. SOLU-MEDROL [Suspect]
     Indication: PROPHYLAXIS OF NAUSEA AND VOMITING
     Dosage: 40MG PER DAY
     Route: 042
     Dates: start: 20100913, end: 20100917
  8. DUPHALAC [Concomitant]
     Indication: PRODUCT USED FOR UNKNOWN INDICATION
     Route: 065
  9. PARACETAMOL [Concomitant]
     Indication: PRODUCT USED FOR UNKNOWN INDICATION
     Route: 065
  10. ZOPHREN [Suspect]
     Indication: PROPHYLAXIS OF NAUSEA AND VOMITING
     Dosage: 8MG PER DAY
     Route: 042
     Dates: start: 20100913, end: 20100917
  11. HOLOXAN [Suspect]
     Indication: BONE SARCOMA
     Dosage: 1000MG PER DAY
     Route: 042
     Dates: start: 20100913, end: 20100914
  12. EMEND [Concomitant]
     Indication: PRODUCT USED FOR UNKNOWN INDICATION
     Route: 065
  13. LOVENOX [Concomitant]
     Indication: PRODUCT USED FOR UNKNOWN INDICATION
     Route: 065

REACTIONS (7)
  - MYOCLONUS [None]
  - CONFUSIONAL STATE [None]
  - HYPOPHOSPHATAEMIA [None]
  - COMA [None]
  - HYPONATRAEMIA [None]
  - ENCEPHALOPATHY [None]
  - URINARY INCONTINENCE [None]
